FAERS Safety Report 5295338-2 (Version None)
Quarter: 2007Q2

REPORT INFORMATION
  Report Type: 
  Country: None (occurrence: None)
  Receive Date: 20070405
  Receipt Date: 20070330
  Transmission Date: 20071010
  Serious: Yes (Hospitalization)
  Sender: FDA-Public Use
  Company Number: 237794

PATIENT
  Age: 53 Year
  Sex: Male

DRUGS (8)
  1. AVASTIN [Suspect]
     Indication: HEPATIC NEOPLASM MALIGNANT
     Dosage: 10 MG/KG, Q2W, INTRAVENOUS
     Route: 042
     Dates: start: 20061115
  2. ERLOTINIB (ERLOTINIB) TABLET [Suspect]
     Indication: HEPATIC NEOPLASM MALIGNANT
     Dosage: 150 MG, QD, ORAL
     Route: 048
     Dates: start: 20061116
  3. MORPHINE [Concomitant]
  4. HYDROCHLOROTHIAZIDE [Concomitant]
  5. PROPRANOLOL (PROPRANOLOL HYDROCHLORIDE) [Concomitant]
  6. EPIVIR [Concomitant]
  7. KEFLEX [Concomitant]
  8. BACTROBAN [Concomitant]

REACTIONS (11)
  - ASCITES [None]
  - DIARRHOEA [None]
  - HAEMATOCRIT DECREASED [None]
  - HAEMOGLOBIN DECREASED [None]
  - NECROSIS [None]
  - PERIANAL ABSCESS [None]
  - PERINEAL ABSCESS [None]
  - RED BLOOD CELL COUNT DECREASED [None]
  - THROMBOSIS [None]
  - TUMOUR EMBOLISM [None]
  - WHITE BLOOD CELL COUNT ABNORMAL [None]
